FAERS Safety Report 4744785-3 (Version None)
Quarter: 2005Q3

REPORT INFORMATION
  Report Type: 
  Country: None (occurrence: None)
  Receive Date: 20050811
  Receipt Date: 20050802
  Transmission Date: 20060218
  Serious: Yes (Life-Threatening, Other)
  Sender: FDA-Public Use
  Company Number: 200511323BCC

PATIENT
  Sex: Female
  Weight: 76.2043 kg

DRUGS (3)
  1. ALEVE [Suspect]
  2. ADVIL LIQUI-GELS [Suspect]
     Indication: LOWER LIMB FRACTURE
     Dosage: ONCE
  3. PREVACID [Concomitant]

REACTIONS (2)
  - ANAPHYLACTIC REACTION [None]
  - ANGIONEUROTIC OEDEMA [None]
